FAERS Safety Report 8303926-1 (Version None)
Quarter: 2012Q2

REPORT INFORMATION
  Report Type: 
  Country: None (occurrence: None)
  Receive Date: 20120423
  Receipt Date: 20120418
  Transmission Date: 20120825
  Serious: Yes (Hospitalization)
  Sender: FDA-Public Use
  Company Number: PHHY2012EC033153

PATIENT
  Sex: Male

DRUGS (1)
  1. TRILEPTAL [Suspect]
     Indication: EPILEPSY
     Dosage: 600 MG
     Route: 048
     Dates: start: 20091001

REACTIONS (4)
  - ABDOMINAL PAIN LOWER [None]
  - APPENDICITIS [None]
  - VOMITING [None]
  - CONVULSION [None]
